FAERS Safety Report 8517976-3 (Version None)
Quarter: 2012Q3

REPORT INFORMATION
  Report Type: 
  Country: None (occurrence: None)
  Receive Date: 20120718
  Receipt Date: 20120710
  Transmission Date: 20120928
  Serious: Yes (Hospitalization)
  Sender: FDA-Public Use
  Company Number: US-ASTELLAS-2012US005802

PATIENT
  Sex: Male
  Weight: 47 kg

DRUGS (5)
  1. TACROLIMUS [Suspect]
     Indication: DERMATITIS ATOPIC
     Dosage: 0.1 %, UID/QD
     Route: 061
     Dates: start: 20070807
  2. PERIACTIN [Concomitant]
     Indication: ECZEMA
     Dosage: 4 MG, TID
     Route: 048
     Dates: start: 20080909
  3. ZYRTEC [Concomitant]
     Indication: SEASONAL ALLERGY
     Dosage: 10 MG, UID/QD
     Route: 048
     Dates: start: 20051001
  4. TRIAMCINOLONE [Concomitant]
     Indication: ECZEMA
     Dosage: 0.1 %, BID
     Route: 061
     Dates: start: 20070807
  5. ADVAIR DISKUS 100/50 [Concomitant]
     Indication: ASTHMA
     Dosage: 230 UNK, BID
     Route: 055
     Dates: start: 20080909

REACTIONS (2)
  - OFF LABEL USE [None]
  - ASTHMA [None]
